FAERS Safety Report 6236934-5 (Version None)
Quarter: 2009Q2

REPORT INFORMATION
  Report Type: 
  Country: None (occurrence: None)
  Receive Date: 20090619
  Receipt Date: 20090318
  Transmission Date: 20091009
  Serious: No
  Sender: FDA-Public Use
  Company Number: US-ASTRAZENECA-2009UW03743

PATIENT
  Age: 46 Year
  Sex: Female

DRUGS (1)
  1. SYMBICORT [Suspect]
     Indication: ASTHMA
     Dosage: 160/4.5 TWO PUFFS TWICE A DAY DECREASED TO ONE PUFF TWICE A DAY
     Route: 055
     Dates: start: 20081201

REACTIONS (1)
  - FEELING JITTERY [None]
